FAERS Safety Report 11789796 (Version 1)
Quarter: 2015Q4

REPORT INFORMATION
  Report Type: Spontaneous
  Country: FR (occurrence: FR)
  Receive Date: 20151201
  Receipt Date: 20151201
  Transmission Date: 20160305
  Serious: Yes (Hospitalization)
  Sender: FDA-Public Use
  Company Number: FR-SA-2015SA189140

PATIENT
  Age: 79 Year
  Sex: Male

DRUGS (11)
  1. MECIR [Concomitant]
     Active Substance: TAMSULOSIN HYDROCHLORIDE
  2. INEXIUM [Concomitant]
     Active Substance: ESOMEPRAZOLE
  3. LASILIX [Suspect]
     Active Substance: FUROSEMIDE
     Indication: CHRONIC KIDNEY DISEASE
     Route: 048
     Dates: end: 20151031
  4. TARDYFERON [Concomitant]
     Active Substance: FERROUS SULFATE\FOLIC ACID
  5. IMOVANE [Concomitant]
     Active Substance: ZOPICLONE
  6. LASILIX [Suspect]
     Active Substance: FUROSEMIDE
     Indication: CHRONIC KIDNEY DISEASE
     Route: 048
  7. ESIDREX [Suspect]
     Active Substance: HYDROCHLOROTHIAZIDE
     Indication: HYPERTENSION
     Route: 065
     Dates: end: 20151031
  8. KARDEGIC [Concomitant]
     Active Substance: ASPIRIN LYSINE
  9. CRESTOR [Concomitant]
     Active Substance: ROSUVASTATIN CALCIUM
  10. ZYMAD [Concomitant]
     Active Substance: CHOLECALCIFEROL
  11. MIRCERA [Concomitant]
     Active Substance: METHOXY POLYETHYLENE GLYCOL-EPOETIN BETA

REACTIONS (1)
  - Acute prerenal failure [Not Recovered/Not Resolved]

NARRATIVE: CASE EVENT DATE: 20151031
